FAERS Safety Report 7035600-6 (Version None)
Quarter: 2010Q4

REPORT INFORMATION
  Report Type: 
  Country: None (occurrence: None)
  Receive Date: 20101008
  Receipt Date: 20100927
  Transmission Date: 20110411
  Serious: Yes (Other)
  Sender: FDA-Public Use
  Company Number: NO-PFIZER INC-2010122843

PATIENT
  Age: 43 Year
  Sex: Female

DRUGS (2)
  1. LYRICA [Suspect]
     Indication: TRIGEMINAL NEURALGIA
     Dosage: 75 MG, 2X/DAY
     Dates: start: 20100501, end: 20100101
  2. LYRICA [Suspect]
     Dosage: 75 MG, 3X/DAY
     Dates: start: 20100101

REACTIONS (9)
  - APHASIA [None]
  - CHEST DISCOMFORT [None]
  - COGNITIVE DISORDER [None]
  - DECREASED APPETITE [None]
  - DIZZINESS [None]
  - DRUG INEFFECTIVE [None]
  - MENSTRUAL DISORDER [None]
  - NASAL CONGESTION [None]
  - VISUAL ACUITY REDUCED [None]
